FAERS Safety Report 19912118 (Version 1)
Quarter: 2021Q4

REPORT INFORMATION
  Report Type: Spontaneous
  Country: US (occurrence: US)
  Receive Date: 20211004
  Receipt Date: 20211004
  Transmission Date: 20220304
  Serious: Yes (Other)
  Sender: FDA-Public Use
  Company Number: US-MYLANLABS-2021M1067490

PATIENT
  Sex: Female
  Weight: 49 kg

DRUGS (2)
  1. WIXELA INHUB [Suspect]
     Active Substance: FLUTICASONE PROPIONATE\SALMETEROL XINAFOATE
     Indication: Asthma
     Dosage: UNK
     Route: 055
  2. MOMETASONE FUROATE [Concomitant]
     Active Substance: MOMETASONE FUROATE
     Indication: Nasal disorder
     Dosage: UNK

REACTIONS (8)
  - Pulmonary congestion [Unknown]
  - Cough [Unknown]
  - Myalgia [Unknown]
  - Condition aggravated [Unknown]
  - Sleep disorder [Unknown]
  - Fatigue [Unknown]
  - Product substitution issue [Unknown]
  - Drug ineffective [Unknown]
